FAERS Safety Report 20874173 (Version 2)
Quarter: 2022Q2

REPORT INFORMATION
  Report Type: Report from Study
  Country: JP (occurrence: JP)
  Receive Date: 20220525
  Receipt Date: 20220602
  Transmission Date: 20220721
  Serious: Yes (Death, Hospitalization)
  Sender: FDA-Public Use
  Company Number: JP-MSD-M2022-19178

PATIENT
  Age: 81 Year
  Sex: Male

DRUGS (4)
  1. MOLNUPIRAVIR [Suspect]
     Active Substance: MOLNUPIRAVIR
     Indication: COVID-19 treatment
     Dosage: 800 MILLIGRAM, BID
     Route: 048
     Dates: start: 20220223, end: 20220224
  2. MEMANTINE HYDROCHLORIDE [Concomitant]
     Active Substance: MEMANTINE HYDROCHLORIDE
     Dosage: 10 MILLIGRAM, QD
     Route: 048
     Dates: start: 20200221, end: 2022
  3. AMLODIPINE BESYLATE [Concomitant]
     Active Substance: AMLODIPINE BESYLATE
     Indication: COVID-19
     Dosage: UNK UNK, QD
     Route: 048
     Dates: start: 20200320
  4. FLUNITRAZEPAM [Concomitant]
     Active Substance: FLUNITRAZEPAM
     Indication: COVID-19
     Dosage: UNK UNK, QD
     Route: 048
     Dates: start: 20200506

REACTIONS (2)
  - COVID-19 [Unknown]
  - Respiratory disorder [Fatal]

NARRATIVE: CASE EVENT DATE: 20220224
